FAERS Safety Report 21265254 (Version 1)
Quarter: 2022Q3

REPORT INFORMATION
  Report Type: Spontaneous
  Country: US (occurrence: US)
  Receive Date: 20220829
  Receipt Date: 20220829
  Transmission Date: 20221027
  Serious: No
  Sender: FDA-Public Use
  Company Number: US-BSC-2021000145

PATIENT
  Sex: Female

DRUGS (1)
  1. VARITHENA [Suspect]
     Active Substance: POLIDOCANOL
     Indication: Varicose vein
     Dates: start: 20211210

REACTIONS (3)
  - Blister [Unknown]
  - Dermatitis allergic [Unknown]
  - Haematoma [Unknown]

NARRATIVE: CASE EVENT DATE: 20211201
